FAERS Safety Report 13240765 (Version 2)
Quarter: 2017Q1

REPORT INFORMATION
  Report Type: Spontaneous
  Country: FR (occurrence: FR)
  Receive Date: 20170216
  Receipt Date: 20170310
  Transmission Date: 20170428
  Serious: Yes (Other)
  Sender: FDA-Public Use
  Company Number: FR-JNJFOC-20170207074

PATIENT

DRUGS (1)
  1. INFLIXIMAB, RECOMBINANT [Suspect]
     Active Substance: INFLIXIMAB
     Indication: CROHN^S DISEASE
     Route: 042

REACTIONS (7)
  - Lupus-like syndrome [Unknown]
  - Infection [Unknown]
  - Therapeutic response decreased [Unknown]
  - Arthropathy [Unknown]
  - Neoplasm malignant [Unknown]
  - Anaphylactic reaction [Unknown]
  - Psoriasis [Unknown]
